FAERS Safety Report 5027866-9 (Version None)
Quarter: 2006Q2

REPORT INFORMATION
  Report Type: 
  Country: None (occurrence: None)
  Receive Date: 20060616
  Receipt Date: 20060530
  Transmission Date: 20061013
  Serious: Yes (Hospitalization)
  Sender: FDA-Public Use
  Company Number: US-ROCHE-450084

PATIENT
  Age: 74 Year
  Sex: Female
  Weight: 63.5 kg

DRUGS (2)
  1. BONIVA [Suspect]
     Indication: OSTEOPOROSIS
     Route: 048
     Dates: start: 20051115
  2. AVAPRO [Concomitant]
     Route: 048
     Dates: start: 20050615

REACTIONS (1)
  - TRANSIENT ISCHAEMIC ATTACK [None]
